FAERS Safety Report 6983513-8 (Version None)
Quarter: 2010Q3

REPORT INFORMATION
  Report Type: 
  Country: None (occurrence: None)
  Receive Date: 20100914
  Receipt Date: 20080718
  Transmission Date: 20110219
  Serious: No
  Sender: FDA-Public Use
  Company Number: US-WYE-H05207108

PATIENT
  Age: 24 Year
  Sex: Female
  Weight: 49.94 kg

DRUGS (2)
  1. ADVIL LIQUI-GELS [Suspect]
     Route: 048
     Dates: start: 20080614, end: 20080614
  2. TYLENOL SORE THROAT DAYTIME [Suspect]
     Indication: OROPHARYNGEAL PAIN
     Route: 048
     Dates: start: 20080614, end: 20080614

REACTIONS (1)
  - THROAT TIGHTNESS [None]
